FAERS Safety Report 8150923-5 (Version None)
Quarter: 2012Q1

REPORT INFORMATION
  Report Type: 
  Country: None (occurrence: None)
  Receive Date: 20120220
  Receipt Date: 20120216
  Transmission Date: 20120608
  Serious: Yes (Death)
  Sender: FDA-Public Use
  Company Number: IE-ABBOTT-12P-229-0889642-00

PATIENT
  Sex: Female

DRUGS (2)
  1. HUMIRA [Suspect]
     Indication: FISTULA
     Route: 058
     Dates: start: 20101110
  2. HUMIRA [Suspect]
     Indication: CROHN'S DISEASE

REACTIONS (4)
  - DRUG INEFFECTIVE [None]
  - RESPIRATORY ARREST [None]
  - PULMONARY EMBOLISM [None]
  - CROHN'S DISEASE [None]
